FAERS Safety Report 6143802-6 (Version None)
Quarter: 2009Q2

REPORT INFORMATION
  Report Type: 
  Country: None (occurrence: None)
  Receive Date: 20090403
  Receipt Date: 20090403
  Transmission Date: 20091009
  Serious: Yes (Hospitalization)
  Sender: FDA-Public Use
  Company Number: PHHO2002HU09055

PATIENT
  Sex: Female
  Weight: 69 kg

DRUGS (7)
  1. CGS 20267 T30748+ [Suspect]
     Indication: BREAST CANCER
     Dosage: 2.5 MG, QD
     Route: 048
     Dates: end: 20021111
  2. TAMOXIFEN CITRATE [Suspect]
     Dosage: 20 MG, QD-2 YEARS
     Dates: start: 20000217
  3. FUROSEMID [Concomitant]
  4. CLEXANE [Concomitant]
  5. TRAMADOL HCL [Concomitant]
  6. ALGOPYRIN [Concomitant]
  7. TORECAN [Concomitant]

REACTIONS (6)
  - CHEST PAIN [None]
  - COUGH [None]
  - DYSPNOEA [None]
  - HYPERTROPHIC CARDIOMYOPATHY [None]
  - PLEURAL EFFUSION [None]
  - PULMONARY EMBOLISM [None]
